FAERS Safety Report 20832017 (Version 1)
Quarter: 2022Q2

REPORT INFORMATION
  Report Type: 
  Country: None (occurrence: None)
  Receive Date: 20220516
  Receipt Date: 20220516
  Transmission Date: 20220720
  Serious: No
  Sender: FDA-Public Use
  Company Number: DE-ROCHE-2667359

PATIENT

DRUGS (4)
  1. OCREVUS [Suspect]
     Active Substance: OCRELIZUMAB
     Dates: start: 20200724
  2. OCREVUS [Suspect]
     Active Substance: OCRELIZUMAB
     Dates: start: 20210218
  3. OCREVUS [Suspect]
     Active Substance: OCRELIZUMAB
     Dates: start: 20210813
  4. VITAMIN D3 [Concomitant]
     Active Substance: CHOLECALCIFEROL

REACTIONS (14)
  - Herpes zoster [None]
  - Abdominal pain [None]
  - Nausea [None]
  - Diarrhoea [None]
  - Bronchitis [None]
  - White blood cell count decreased [None]
  - Nasopharyngitis [None]
  - Sleep disorder [None]
  - Poor quality sleep [None]
  - Paraesthesia [None]
  - Visual impairment [None]
  - Nausea [None]
  - Abdominal pain upper [None]
  - Diarrhoea [None]

NARRATIVE: CASE EVENT DATE: 20200725
